FAERS Safety Report 7794574-0 (Version None)
Quarter: 2011Q4

REPORT INFORMATION
  Report Type: 
  Country: None (occurrence: None)
  Receive Date: 20111003
  Receipt Date: 20111003
  Transmission Date: 20120403
  Serious: Yes (Other)
  Sender: FDA-Public Use
  Company Number: None

PATIENT
  Sex: Female
  Weight: 106.5953 kg

DRUGS (2)
  1. BISOPROLOL FUMARATE AND HYDROCHLOROTHIAZIDE [Suspect]
     Indication: HYPERTENSION
     Dosage: 1 10 QD PO
     Route: 048
     Dates: start: 20110101
  2. BISOPROLOL FUMARATE AND HYDROCHLOROTHIAZIDE [Suspect]
     Indication: HYPERTENSION
     Dosage: 1 10/6.25 QD PO
     Route: 048
     Dates: start: 20100101

REACTIONS (4)
  - DYSPNOEA [None]
  - MUSCLE SPASMS [None]
  - COUGH [None]
  - DRY MOUTH [None]
